FAERS Safety Report 7384638-8 (Version None)
Quarter: 2011Q1

REPORT INFORMATION
  Report Type: 
  Country: None (occurrence: None)
  Receive Date: 20110323
  Receipt Date: 20110311
  Transmission Date: 20110831
  Serious: Yes (Hospitalization)
  Sender: FDA-Public Use
  Company Number: DSA_45209_2011

PATIENT
  Sex: Female

DRUGS (7)
  1. WELLBUTRIN [Suspect]
     Indication: PREMENSTRUAL SYNDROME
     Dosage: 1 TABLET TWICE PER DAY, ORAL
     Route: 048
  2. WELLBUTRIN [Suspect]
     Indication: POST-TRAUMATIC STRESS DISORDER
     Dosage: 1 TABLET TWICE PER DAY, ORAL
     Route: 048
  3. WELLBUTRIN [Suspect]
     Indication: DEPRESSION
     Dosage: 1 TABLET TWICE PER DAY, ORAL
     Route: 048
  4. NUVIGIL [Suspect]
     Indication: HYPERSOMNIA
     Dosage: DF ORAL
     Route: 048
     Dates: start: 20100101, end: 20101201
  5. CYMBALTA [Suspect]
     Indication: POST-TRAUMATIC STRESS DISORDER
     Dosage: 2 TABLETS DAILY, ORAL
     Route: 048
  6. CYMBALTA [Suspect]
     Indication: PREMENSTRUAL SYNDROME
     Dosage: 2 TABLETS DAILY, ORAL
     Route: 048
  7. CYMBALTA [Suspect]
     Indication: DEPRESSION
     Dosage: 2 TABLETS DAILY, ORAL
     Route: 048

REACTIONS (9)
  - SWELLING FACE [None]
  - LIP SWELLING [None]
  - DYSPNOEA [None]
  - SWOLLEN TONGUE [None]
  - CONVULSION [None]
  - HYPERSENSITIVITY [None]
  - DRUG INTERACTION [None]
  - DYSKINESIA [None]
  - TREMOR [None]
